FAERS Safety Report 10568391 (Version 1)
Quarter: 2014Q4

REPORT INFORMATION
  Report Type: Spontaneous
  Country: US (occurrence: None)
  Receive Date: 20141024
  Receipt Date: 20141024
  Transmission Date: 20150529
  Serious: No
  Sender: FDA-Public Use
  Company Number: 1423920

PATIENT
  Age: 41 Year
  Sex: Male

DRUGS (2)
  1. IL-2 (ALDESLEUKIN) [Concomitant]
  2. ZELBORAF [Suspect]
     Active Substance: VEMURAFENIB
     Indication: METASTATIC MALIGNANT MELANOMA

REACTIONS (2)
  - Tremor [None]
  - Eye pain [None]
